FAERS Safety Report 14820665 (Version 2)
Quarter: 2018Q4

REPORT INFORMATION
  Report Type: Spontaneous
  Country: CH (occurrence: CH)
  Receive Date: 20180427
  Receipt Date: 20181221
  Transmission Date: 20190204
  Serious: Yes (Other)
  Sender: FDA-Public Use
  Company Number: CH-ALLERGAN-1822796US

PATIENT
  Age: 32 Year
  Sex: Female

DRUGS (7)
  1. SAROTEN RETARD [Interacting]
     Active Substance: AMITRIPTYLINE
     Indication: PERINATAL DEPRESSION
     Dosage: 50 MG, QD
     Route: 048
     Dates: end: 20180305
  2. ALPRAZOLAM. [Concomitant]
     Active Substance: ALPRAZOLAM
     Dosage: DELAYED-RELEASE ALPRAZOLAM 2MG/D + ALPRAZOLAM 0.5 MG AS NEEDED
     Route: 065
     Dates: start: 20180305
  3. ESCITALOPRAM OXALATE - BP [Suspect]
     Active Substance: ESCITALOPRAM OXALATE
     Indication: ANXIETY DISORDER
     Dosage: 10 MG, QD
     Route: 048
     Dates: start: 20180312
  4. SAROTEN RETARD [Interacting]
     Active Substance: AMITRIPTYLINE
     Indication: ANXIETY DISORDER
     Dosage: 25 MG, QD
     Route: 048
     Dates: start: 20180305, end: 20180312
  5. ESCITALOPRAM OXALATE - BP [Interacting]
     Active Substance: ESCITALOPRAM OXALATE
     Dosage: 5 MG, QD
     Route: 048
     Dates: start: 20180305, end: 20180311
  6. DIAZEPAM. [Suspect]
     Active Substance: DIAZEPAM
     Indication: PERINATAL DEPRESSION
  7. DIAZEPAM. [Suspect]
     Active Substance: DIAZEPAM
     Indication: ANXIETY DISORDER
     Dosage: 9 MG, QD
     Route: 048
     Dates: end: 20180305

REACTIONS (3)
  - Drug interaction [Recovered/Resolved]
  - Product use in unapproved indication [Unknown]
  - Withdrawal syndrome [Recovered/Resolved]

NARRATIVE: CASE EVENT DATE: 20180314
